FAERS Safety Report 7800244-2 (Version None)
Quarter: 2011Q4

REPORT INFORMATION
  Report Type: 
  Country: None (occurrence: None)
  Receive Date: 20111006
  Receipt Date: 20110912
  Transmission Date: 20120403
  Serious: Yes (Hospitalization)
  Sender: FDA-Public Use
  Company Number: US-GLAXOSMITHKLINE-A0945005A

PATIENT
  Age: 44 Year
  Sex: Female
  Weight: 115 kg

DRUGS (14)
  1. IMODIUM [Concomitant]
     Dosage: 2MG AS REQUIRED
  2. RISPERIDONE [Concomitant]
     Dosage: 2MG TWICE PER DAY
  3. BENTYL [Concomitant]
     Dosage: 40MG FOUR TIMES PER DAY
  4. MOBIC [Concomitant]
     Dosage: 15MG PER DAY
  5. CELEXA [Concomitant]
     Dosage: 40MG PER DAY
  6. NAPROXEN (ALEVE) [Concomitant]
     Dosage: 200MG AS REQUIRED
  7. TRAMADOL HCL [Concomitant]
     Dosage: 100MG FOUR TIMES PER DAY
  8. REVATIO [Concomitant]
     Dosage: 20MG THREE TIMES PER DAY
  9. POTASSIUM [Concomitant]
     Dosage: 20MEQ TWICE PER DAY
  10. GABAPENTIN [Concomitant]
     Dosage: 1200MG THREE TIMES PER DAY
  11. PRILOSEC [Concomitant]
     Dosage: 20MG TWICE PER DAY
  12. FLOLAN [Suspect]
     Indication: PULMONARY ARTERIAL HYPERTENSION
     Route: 042
     Dates: start: 20090806
  13. FUROSEMIDE [Concomitant]
     Dosage: 80MG TWICE PER DAY
  14. PAXIL CR [Concomitant]
     Dosage: 37.5MG PER DAY

REACTIONS (2)
  - PAIN IN JAW [None]
  - CARDIAC FAILURE [None]
